FAERS Safety Report 9298749 (Version 1)
Quarter: 2013Q2

REPORT INFORMATION
  Report Type: Spontaneous
  Country: US (occurrence: US)
  Receive Date: 20130520
  Receipt Date: 20130520
  Transmission Date: 20140414
  Serious: Yes (Other)
  Sender: FDA-Public Use
  Company Number: US-GLAXOSMITHKLINE-A1023728A

PATIENT
  Age: 41 Year
  Sex: Female
  Weight: 65.9 kg

DRUGS (1)
  1. PAXIL [Suspect]
     Indication: DEPRESSION
     Route: 065

REACTIONS (5)
  - Mania [Unknown]
  - Panic attack [Unknown]
  - Sleep disorder [Unknown]
  - Constipation [Unknown]
  - Ill-defined disorder [Unknown]
